FAERS Safety Report 10005958 (Version 1)
Quarter: 2014Q1

REPORT INFORMATION
  Report Type: Spontaneous
  Country: GB (occurrence: GB)
  Receive Date: 20140313
  Receipt Date: 20140313
  Transmission Date: 20141002
  Serious: Yes (Disabling, Other)
  Sender: FDA-Public Use
  Company Number: GB-ACCORD-022417

PATIENT
  Age: 48 Year
  Sex: Female

DRUGS (2)
  1. PACLITAXEL/PACLITAXEL LIPOSOME [Suspect]
     Indication: OVARIAN ENDOMETRIOID CARCINOMA
     Dosage: WEEKLY 80 MG/M2 (TOTAL DOSE 150 MG)
  2. CARBOPLATIN [Suspect]
     Indication: OVARIAN ENDOMETRIOID CARCINOMA
     Dosage: DOSE OF 740 MG (AUC 6) IN 3-WEEKLY CYCLES

REACTIONS (4)
  - Hypersensitivity [Unknown]
  - Neutropenia [Unknown]
  - Thrombocytopenia [Unknown]
  - Papilloedema [Not Recovered/Not Resolved]
